FAERS Safety Report 18378241 (Version 5)
Quarter: 2021Q1

REPORT INFORMATION
  Report Type: Report from Study
  Country: JP (occurrence: JP)
  Receive Date: 20201013
  Receipt Date: 20210324
  Transmission Date: 20210419
  Serious: Yes (Other)
  Sender: FDA-Public Use
  Company Number: JP-JNJFOC-A-CH2017-159625

PATIENT
  Age: 21 Year
  Sex: Female
  Weight: 43.3 kg

DRUGS (25)
  1. UPTRAVI [Suspect]
     Active Substance: SELEXIPAG
     Dosage: 1.2 MG, BID
     Route: 048
     Dates: start: 20170811, end: 20170817
  2. TREPROST [Suspect]
     Active Substance: TREPROSTINIL
     Dosage: 56.9 NG/KG, PER MIN
     Route: 058
     Dates: start: 20171226, end: 20180713
  3. LASIX [Suspect]
     Active Substance: FUROSEMIDE
     Dosage: 40 MG, QD
     Route: 048
     Dates: start: 20190215
  4. SAMSCA [Concomitant]
     Active Substance: TOLVAPTAN
     Indication: PROPHYLAXIS
     Dosage: 3.75 MG, QD
     Dates: start: 20190218
  5. SAMSCA [Concomitant]
     Active Substance: TOLVAPTAN
  6. COCARL [Concomitant]
     Active Substance: ACETAMINOPHEN
     Indication: HEADACHE
     Dosage: UNK
     Dates: start: 20170607
  7. LASIX [Suspect]
     Active Substance: FUROSEMIDE
     Route: 048
  8. ALDACTONE A [Suspect]
     Active Substance: SPIRONOLACTONE
     Indication: PROPHYLAXIS
     Dosage: 25 MG, QD
     Route: 065
     Dates: start: 20190215
  9. FERROMIA [Concomitant]
     Active Substance: SODIUM FERROUS CITRATE
     Indication: IRON DEFICIENCY ANAEMIA
     Dates: start: 20190823
  10. UPTRAVI [Suspect]
     Active Substance: SELEXIPAG
     Dosage: 0.8 MG, BID
     Route: 048
     Dates: start: 20170721, end: 20170803
  11. UPTRAVI [Suspect]
     Active Substance: SELEXIPAG
     Dosage: 1.0 MG, BID
     Route: 048
     Dates: start: 20170804, end: 20170810
  12. TREPROST [Suspect]
     Active Substance: TREPROSTINIL
     Indication: PULMONARY ARTERIAL HYPERTENSION
     Dosage: 1 NG/KG, PER MIN
     Route: 058
     Dates: start: 20171226, end: 20180713
  13. LASIX [Suspect]
     Active Substance: FUROSEMIDE
     Route: 048
     Dates: start: 20180611
  14. UPTRAVI [Suspect]
     Active Substance: SELEXIPAG
     Indication: PULMONARY ARTERIAL HYPERTENSION
     Dosage: 1.4 MG, BID
     Route: 048
     Dates: start: 20170818, end: 20170824
  15. UPTRAVI [Suspect]
     Active Substance: SELEXIPAG
     Dosage: 0.4 MG, BID
     Route: 048
     Dates: start: 20170707, end: 20170713
  16. UPTRAVI [Suspect]
     Active Substance: SELEXIPAG
     Dosage: 0.6 MG, BID
     Route: 048
     Dates: start: 20170714, end: 20170720
  17. DIART [Concomitant]
     Active Substance: AZOSEMIDE
     Indication: PROPHYLAXIS
     Dates: start: 20191120
  18. OPSUMIT [Suspect]
     Active Substance: MACITENTAN
     Indication: PULMONARY ARTERIAL HYPERTENSION
     Dosage: 10 MG, QD
     Route: 048
     Dates: start: 20170527
  19. EPOPROSTENOL ACT [Suspect]
     Active Substance: EPOPROSTENOL
     Indication: PULMONARY ARTERIAL HYPERTENSION
     Route: 042
     Dates: start: 20180713
  20. LASIX [Suspect]
     Active Substance: FUROSEMIDE
     Indication: PULMONARY ARTERIAL HYPERTENSION
     Dosage: 20 MG, QD
     Route: 048
     Dates: start: 20180616, end: 20190214
  21. VASOLAN [Concomitant]
  22. UPTRAVI [Suspect]
     Active Substance: SELEXIPAG
     Dosage: 0.2 MG, BID
     Route: 048
     Dates: start: 20170630, end: 20170706
  23. OXYGEN. [Concomitant]
     Active Substance: OXYGEN
  24. UPTRAVI [Suspect]
     Active Substance: SELEXIPAG
     Dosage: 1.6 MG, BID
     Route: 048
     Dates: start: 20170825
  25. ADEMPAS [Suspect]
     Active Substance: RIOCIGUAT
     Indication: PULMONARY ARTERIAL HYPERTENSION
     Dosage: 3 MG, QD
     Route: 048
     Dates: start: 20170531

REACTIONS (29)
  - Adrenal neoplasm [Recovering/Resolving]
  - Iron deficiency anaemia [Recovering/Resolving]
  - Infected dermal cyst [Recovered/Resolved]
  - Secondary aldosteronism [Recovering/Resolving]
  - Diarrhoea [Recovering/Resolving]
  - Fatigue [Recovering/Resolving]
  - Dry skin [Recovering/Resolving]
  - Inflammation [Recovering/Resolving]
  - Pericardial effusion [Recovering/Resolving]
  - Right ventricular failure [Recovering/Resolving]
  - Sensation of foreign body [Recovering/Resolving]
  - Dermatitis contact [Recovering/Resolving]
  - Headache [Recovering/Resolving]
  - Tinnitus [Recovering/Resolving]
  - Infusion site pain [Recovering/Resolving]
  - Laryngeal discomfort [Recovered/Resolved]
  - Device related infection [Recovering/Resolving]
  - Catheter site erythema [Recovering/Resolving]
  - Pain in jaw [Recovering/Resolving]
  - Constipation [Recovering/Resolving]
  - C-reactive protein increased [Recovered/Resolved]
  - Catheter site infection [Recovering/Resolving]
  - Nodule [Recovering/Resolving]
  - Blood corticotrophin decreased [Not Recovered/Not Resolved]
  - Blood aldosterone increased [Recovering/Resolving]
  - Palpitations [Recovering/Resolving]
  - Renin increased [Not Recovered/Not Resolved]
  - White blood cell count increased [Recovering/Resolving]
  - Supraventricular tachycardia [Recovered/Resolved]

NARRATIVE: CASE EVENT DATE: 20170607
